FAERS Safety Report 8923696 (Version 3)
Quarter: 2013Q1

REPORT INFORMATION
  Report Type: Spontaneous
  Country: UA (occurrence: None)
  Receive Date: 20121115
  Receipt Date: 20130211
  Transmission Date: 20140127
  Serious: No
  Sender: FDA-Public Use
  Company Number: 1210UKR011373

PATIENT
  Age: 46 Year
  Sex: Female

DRUGS (2)
  1. CEDAX [Suspect]
     Route: 048
     Dates: start: 20120925, end: 2012
  2. LASOLVAN [Suspect]
     Route: 048
     Dates: start: 20120923, end: 20121002

REACTIONS (4)
  - Asthenia [None]
  - Dyspnoea [None]
  - Diarrhoea [None]
  - Vertigo [None]
